FAERS Safety Report 16197147 (Version 6)
Quarter: 2019Q4

REPORT INFORMATION
  Report Type: Spontaneous
  Country: US (occurrence: US)
  Receive Date: 20190415
  Receipt Date: 20191108
  Transmission Date: 20200122
  Serious: No
  Sender: FDA-Public Use
  Company Number: US-PFIZER INC-2019151000

PATIENT
  Age: 61 Year
  Sex: Female
  Weight: 68.4 kg

DRUGS (3)
  1. LYRICA [Suspect]
     Active Substance: PREGABALIN
     Dosage: 75 MG, 4X/DAY
     Route: 048
     Dates: start: 201806
  2. LYRICA [Suspect]
     Active Substance: PREGABALIN
     Indication: NEURALGIA
     Dosage: 75 MG, 4X/DAY
     Route: 048
  3. LYRICA [Suspect]
     Active Substance: PREGABALIN
     Indication: GLOSSOPHARYNGEAL NEURALGIA
     Dosage: 75 MG, 3X/DAY
     Route: 048

REACTIONS (5)
  - Weight increased [Unknown]
  - Stress [Unknown]
  - Heart rate increased [Not Recovered/Not Resolved]
  - Nervousness [Unknown]
  - Condition aggravated [Not Recovered/Not Resolved]
